FAERS Safety Report 9386813 (Version 1)
Quarter: 2013Q3

REPORT INFORMATION
  Report Type: Spontaneous
  Country: TR (occurrence: TR)
  Receive Date: 20130708
  Receipt Date: 20130708
  Transmission Date: 20140515
  Serious: Yes (Other)
  Sender: FDA-Public Use
  Company Number: TR-MYLANLABS-2013S1013915

PATIENT
  Age: 55 Year
  Sex: Male

DRUGS (2)
  1. LATANOPROST [Suspect]
     Indication: GLAUCOMA
     Dosage: 0.005%
     Route: 047
  2. BRIMONIDINE W/TIMOLOL [Concomitant]
     Indication: GLAUCOMA
     Dosage: BRIMONIDINE/TIMOLOL 0.2%/0.5%
     Route: 047

REACTIONS (1)
  - Chorioretinopathy [Recovering/Resolving]
